FAERS Safety Report 25516544 (Version 1)
Quarter: 2025Q3

REPORT INFORMATION
  Report Type: Spontaneous
  Country: US (occurrence: US)
  Receive Date: 20250704
  Receipt Date: 20250704
  Transmission Date: 20251020
  Serious: No
  Sender: RADIUS PHARM
  Company Number: US-RADIUS HEALTH INC.-2025US002341

PATIENT
  Sex: Female

DRUGS (4)
  1. TYMLOS [Suspect]
     Active Substance: ABALOPARATIDE
     Indication: Product used for unknown indication
     Dosage: 20 MICROGRAM, QD
     Route: 058
  2. TYMLOS [Suspect]
     Active Substance: ABALOPARATIDE
     Dosage: 80 MICROGRAM, QD
     Route: 058
     Dates: start: 202502, end: 2025
  3. TYMLOS [Suspect]
     Active Substance: ABALOPARATIDE
     Dosage: 20 MICROGRAM, QD
     Route: 058
     Dates: start: 2025, end: 2025
  4. TYMLOS [Suspect]
     Active Substance: ABALOPARATIDE
     Dosage: 30 MICROGRAM, QD
     Route: 058
     Dates: start: 2025, end: 2025

REACTIONS (10)
  - Anxiety [Unknown]
  - Illness [Unknown]
  - Spinal pain [Unknown]
  - Nausea [Unknown]
  - Heart rate increased [Unknown]
  - Dizziness [Unknown]
  - Abdominal distension [Unknown]
  - Injection site pain [Unknown]
  - Product administered at inappropriate site [Unknown]
  - Intentional product misuse [Unknown]

NARRATIVE: CASE EVENT DATE: 20250101
